FAERS Safety Report 7805382-6 (Version None)
Quarter: 2011Q4

REPORT INFORMATION
  Report Type: 
  Country: None (occurrence: None)
  Receive Date: 20111010
  Receipt Date: 20110930
  Transmission Date: 20120403
  Serious: Yes (Other)
  Sender: FDA-Public Use
  Company Number: US-ASTRAZENECA-2011SE58960

PATIENT
  Age: 86 Year
  Sex: Female
  Weight: 59 kg

DRUGS (16)
  1. SEROQUEL [Suspect]
     Route: 048
  2. LEVOTHYROXINE SODIUM [Concomitant]
     Dates: start: 19910101
  3. VALPROIC ACID [Concomitant]
  4. DONEPEZIL HCL [Concomitant]
     Dates: start: 20100101
  5. ROZEREM [Concomitant]
     Dates: start: 20060101
  6. SEROQUEL [Suspect]
     Indication: BIPOLAR DISORDER
     Route: 048
     Dates: start: 20030101
  7. FLOVENT [Concomitant]
     Dosage: 110 MCG BID
  8. SEROQUEL [Suspect]
     Dosage: 25 MG IN THE MORNING 200 MG AT NIGHT
     Route: 048
  9. AMLODIPINE [Concomitant]
  10. PANTOPRAZOLE [Concomitant]
  11. REMERON [Concomitant]
     Dates: start: 20060101
  12. RISPERIDONE [Concomitant]
     Dates: start: 20060101
  13. RISPERIDONE [Concomitant]
     Dates: start: 20080101
  14. NAMENDA [Concomitant]
     Dates: start: 20060101
  15. ASPIRIN [Concomitant]
     Dosage: QAM
  16. ARICEPT [Concomitant]
     Dates: start: 20060101

REACTIONS (6)
  - DECUBITUS ULCER [None]
  - BEDRIDDEN [None]
  - HIP FRACTURE [None]
  - FALL [None]
  - DEMENTIA ALZHEIMER'S TYPE [None]
  - ARTHRITIS [None]
